FAERS Safety Report 5846249-2 (Version None)
Quarter: 2008Q3

REPORT INFORMATION
  Report Type: 
  Country: None (occurrence: None)
  Receive Date: 20080813
  Receipt Date: 20080808
  Transmission Date: 20090109
  Serious: Yes (Hospitalization)
  Sender: FDA-Public Use
  Company Number: 2008SP016200

PATIENT
  Age: 59 Year
  Sex: Male
  Weight: 74.8 kg

DRUGS (6)
  1. VIRAFERONG        (PEGINTERFERON ALFA-2B) [Suspect]
     Indication: HEPATITIS C
     Dosage: 0.5 MCG/KG; QW;
     Dates: start: 20061012, end: 20070701
  2. BLINDED PEGINTERFERON ALFA-2B [Suspect]
     Indication: HEPATITIS C
     Dosage: 1000 MG; QD;, 1000 MG; QD;
     Dates: start: 20061012, end: 20070701
  3. BLINDED PEGINTERFERON ALFA-2B [Suspect]
     Indication: HEPATITIS C
     Dosage: 1000 MG; QD;, 1000 MG; QD;
     Dates: start: 20071105
  4. VENTOLIN [Concomitant]
  5. SERETIDE [Concomitant]
  6. SPIRIVA [Concomitant]

REACTIONS (1)
  - HEPATIC HAEMATOMA [None]
